FAERS Safety Report 7268249-0 (Version None)
Quarter: 2011Q1

REPORT INFORMATION
  Report Type: 
  Country: None (occurrence: None)
  Receive Date: 20110201
  Receipt Date: 20110128
  Transmission Date: 20110831
  Serious: Yes (Death, Other)
  Sender: FDA-Public Use
  Company Number: PHEH2009US15598

PATIENT
  Sex: Female

DRUGS (8)
  1. EXJADE [Suspect]
     Dosage: 1500 MG, UNK
     Route: 048
  2. NORVASC [Concomitant]
     Dosage: 5 MG, UNK
     Route: 048
     Dates: start: 20080509
  3. EXJADE [Suspect]
     Indication: REFRACTORY ANAEMIA WITH RINGED SIDEROBLASTS
     Dosage: 1000 MG, UNK
     Route: 048
     Dates: start: 20091015
  4. MAXAIR [Concomitant]
     Dosage: UNK
     Dates: start: 20101201
  5. AZITHROMYCIN [Concomitant]
     Dosage: 250 MG, UNK
     Dates: start: 20101201
  6. LUMIGAN [Concomitant]
     Dosage: UNK
     Dates: start: 20100304
  7. SPIRIVA [Concomitant]
     Dosage: 18 UG, UNK
     Route: 048
     Dates: start: 20100304
  8. TYLENOL-500 [Concomitant]
     Dosage: 325 MG, UNK
     Route: 048
     Dates: start: 20100304

REACTIONS (17)
  - BRONCHITIS [None]
  - HAEMATOCRIT DECREASED [None]
  - COUGH [None]
  - ANKLE FRACTURE [None]
  - NEUTROPHIL COUNT DECREASED [None]
  - HAEMOGLOBIN DECREASED [None]
  - PNEUMONIA [None]
  - HAEMOPTYSIS [None]
  - SPUTUM DISCOLOURED [None]
  - FALL [None]
  - RED CELL DISTRIBUTION WIDTH INCREASED [None]
  - DYSPNOEA [None]
  - DIARRHOEA [None]
  - PAIN [None]
  - RED BLOOD CELL COUNT DECREASED [None]
  - WHEEZING [None]
  - CHRONIC OBSTRUCTIVE PULMONARY DISEASE [None]
